FAERS Safety Report 8697243 (Version 2)
Quarter: 2012Q4

REPORT INFORMATION
  Report Type: 
  Country: HR (occurrence: HR)
  Receive Date: 20120801
  Receipt Date: 20121010
  Transmission Date: 20130627
  Serious: Yes (Hospitalization)
  Sender: FDA-Public Use
  Company Number: HR-ASTRAZENECA-2012SE51477

PATIENT
  Age: 76 Year
  Sex: Female

DRUGS (2)
  1. ARIMIDEX [Suspect]
     Indication: BREAST NEOPLASM
     Route: 048
     Dates: start: 20120710
  2. CHEMOTHERAPY [Concomitant]

REACTIONS (3)
  - Tenosynovitis [Recovering/Resolving]
  - Fasciitis [Recovering/Resolving]
  - Arthritis reactive [Recovering/Resolving]
